FAERS Safety Report 4538259-2 (Version None)
Quarter: 2004Q4

REPORT INFORMATION
  Report Type: 
  Country: None (occurrence: None)
  Receive Date: 20041221
  Receipt Date: 20041213
  Transmission Date: 20050328
  Serious: Yes (Hospitalization)
  Sender: FDA-Public Use
  Company Number: K200401840

PATIENT
  Age: 60 Year
  Sex: Female

DRUGS (12)
  1. ALTACE [Suspect]
     Dosage: 10 MG, QD, ORAL
     Route: 048
     Dates: start: 20020101, end: 20040101
  2. ALTACE [Suspect]
     Dosage: 10 MG, QD, ORAL
     Route: 048
     Dates: end: 20040101
  3. DILTIAZEM [Suspect]
     Dosage: 300 MG, QD, ORAL
     Route: 048
     Dates: start: 20020101, end: 20040101
  4. DILTIAZEM [Suspect]
     Dosage: 300 MG, QD, ORAL
     Route: 048
     Dates: end: 20040101
  5. EUPRESSYL(URAPIDIL) CAPSULE, 60MG [Suspect]
     Dosage: 120 MG, ORAL
     Route: 048
     Dates: start: 20020101, end: 20040101
  6. EUPRESSYL(URAPIDIL) CAPSULE, 60MG [Suspect]
     Dosage: 120 MG, ORAL
     Route: 048
     Dates: end: 20040101
  7. ZOLOFT [Suspect]
     Dosage: 50 MG, QD, ORAL
     Route: 048
     Dates: start: 20020101, end: 20040101
  8. ZOLOFT [Suspect]
     Dosage: 50 MG, QD, ORAL
     Route: 048
     Dates: end: 20040101
  9. LODALES (SIMVASTATIN) TABLET, 20MG [Suspect]
     Dosage: 30 MG, QD, ORAL
     Route: 048
     Dates: end: 20040101
  10. LODALES (SIMVASTATIN) TABLET, 20MG [Suspect]
     Dosage: 30 MG, QD, ORAL
     Route: 048
     Dates: start: 20020101, end: 20041029
  11. GLUCOR(ACARBOSE) TABLET, 50MG [Suspect]
     Dosage: 150 MG, QD, ORAL
     Route: 048
     Dates: start: 20040901, end: 20040101
  12. GLUCOR(ACARBOSE) TABLET, 50MG [Suspect]
     Dosage: 150 MG, QD, ORAL
     Route: 048
     Dates: end: 20040101

REACTIONS (2)
  - CYTOLYTIC HEPATITIS [None]
  - PANCREATITIS NECROTISING [None]
